FAERS Safety Report 24039035 (Version 1)
Quarter: 2024Q3

REPORT INFORMATION
  Report Type: Spontaneous
  Country: US (occurrence: US)
  Receive Date: 20240702
  Receipt Date: 20240702
  Transmission Date: 20241016
  Serious: Yes (Hospitalization, Other)
  Sender: REGENERON
  Company Number: US-SA-SAC20240605000593

PATIENT
  Age: 82 Year
  Sex: Male

DRUGS (2)
  1. DUPIXENT [Suspect]
     Active Substance: DUPILUMAB
     Indication: Asthma
     Dosage: 300 MG, QOW
     Route: 058
     Dates: start: 20230421
  2. APIXABAN [Suspect]
     Active Substance: APIXABAN
     Dosage: 10 MG, Q12H
     Dates: start: 2024, end: 20240624

REACTIONS (7)
  - Chronic obstructive pulmonary disease [Unknown]
  - Pulmonary embolism [Unknown]
  - Oxygen saturation decreased [Unknown]
  - Pleural effusion [Unknown]
  - Rectal haemorrhage [Recovered/Resolved]
  - Cough [Recovering/Resolving]
  - Therapeutic response shortened [Recovering/Resolving]

NARRATIVE: CASE EVENT DATE: 20240101
